FAERS Safety Report 4878384-X (Version None)
Quarter: 2005Q4

REPORT INFORMATION
  Report Type: 
  Country: None (occurrence: None)
  Receive Date: 20051209
  Receipt Date: 20050901
  Transmission Date: 20060501
  Serious: No
  Sender: FDA-Public Use
  Company Number: SUS1-2005-00665

PATIENT
  Sex: Female

DRUGS (1)
  1. FOSRENOL [Suspect]
     Dates: start: 20050801

REACTIONS (3)
  - DIZZINESS [None]
  - DYSPEPSIA [None]
  - STOMACH DISCOMFORT [None]
